FAERS Safety Report 5429183-1 (Version None)
Quarter: 2007Q3

REPORT INFORMATION
  Report Type: 
  Country: None (occurrence: None)
  Receive Date: 20070827
  Receipt Date: 20070820
  Transmission Date: 20080115
  Serious: No
  Sender: FDA-Public Use
  Company Number: 017411

PATIENT
  Age: 42 Year
  Sex: Female

DRUGS (3)
  1. CENESTIN [Suspect]
     Dosage: ORAL
     Route: 048
  2. CYCLOBENZAPRINE HCL [Concomitant]
  3. FLUTICASONE PROPIONATE [Concomitant]

REACTIONS (3)
  - HAEMANGIOMA [None]
  - MUSCLE SPASMS [None]
  - MYALGIA [None]
